FAERS Safety Report 7030217-1 (Version None)
Quarter: 2010Q4

REPORT INFORMATION
  Report Type: 
  Country: None (occurrence: None)
  Receive Date: 20101004
  Receipt Date: 20100913
  Transmission Date: 20110411
  Serious: Yes (Hospitalization)
  Sender: FDA-Public Use
  Company Number: C-10-0203

PATIENT
  Age: 2 Year
  Weight: 13.1543 kg

DRUGS (1)
  1. PREDNISOLONE SODIUM PHOSPHATE [Suspect]
     Indication: NEPHROTIC SYNDROME
     Dosage: 1 TSP, B.I.D., ORAL
     Route: 048

REACTIONS (4)
  - ASCITES [None]
  - DRUG INEFFECTIVE [None]
  - OEDEMA [None]
  - RENAL IMPAIRMENT [None]
